FAERS Safety Report 9107538 (Version 1)
Quarter: 2013Q1

REPORT INFORMATION
  Report Type: Spontaneous
  Country: US (occurrence: US)
  Receive Date: 20130221
  Receipt Date: 20130221
  Transmission Date: 20140127
  Serious: No
  Sender: FDA-Public Use
  Company Number: US-009507513-1302USA003368

PATIENT
  Sex: Female

DRUGS (3)
  1. SAPHRIS [Suspect]
     Indication: BIPOLAR DISORDER
     Route: 048
  2. TRILEPTAL [Concomitant]
  3. CLOZAPINE [Concomitant]

REACTIONS (2)
  - Feeling drunk [Unknown]
  - Drooling [Unknown]
